FAERS Safety Report 11611135 (Version 2)
Quarter: 2015Q4

REPORT INFORMATION
  Report Type: Spontaneous
  Country: US (occurrence: US)
  Receive Date: 20151008
  Receipt Date: 20151026
  Transmission Date: 20160304
  Serious: Yes (Other)
  Sender: FDA-Public Use
  Company Number: US-BAYER-2015-437709

PATIENT
  Age: 36 Year
  Sex: Female

DRUGS (1)
  1. MIRENA [Suspect]
     Active Substance: LEVONORGESTREL
     Indication: CONTRACEPTION
     Dosage: 20 MCG/24HR, CONT
     Route: 015
     Dates: start: 201411, end: 20151005

REACTIONS (4)
  - Rash generalised [Recovered/Resolved]
  - Genital haemorrhage [Recovered/Resolved]
  - Goitre [None]
  - Headache [Recovering/Resolving]

NARRATIVE: CASE EVENT DATE: 201504
